FAERS Safety Report 13122024 (Version 1)
Quarter: 2017Q1

REPORT INFORMATION
  Report Type: Spontaneous
  Country: US (occurrence: US)
  Receive Date: 20170116
  Receipt Date: 20170116
  Transmission Date: 20170428
  Serious: Yes (Disabling)
  Sender: FDA-Public Use
  Company Number: None

PATIENT
  Age: 57 Year
  Sex: Female
  Weight: 90 kg

DRUGS (5)
  1. LETROZOLE 2.5 MG TABLETSUSP [Suspect]
     Active Substance: LETROZOLE
     Indication: PROPHYLAXIS
     Dosage: ?          QUANTITY:30 TABLET(S);?
     Route: 048
     Dates: start: 20160131, end: 20161223
  2. VITAMIN B12 [Concomitant]
     Active Substance: CYANOCOBALAMIN
  3. UNITHROID [Concomitant]
     Active Substance: LEVOTHYROXINE SODIUM
  4. VITAMIN D [Concomitant]
     Active Substance: CHOLECALCIFEROL
  5. LETROZOLE 2.5 MG TABLETSUSP [Suspect]
     Active Substance: LETROZOLE
     Indication: BREAST CANCER RECURRENT
     Dosage: ?          QUANTITY:30 TABLET(S);?
     Route: 048
     Dates: start: 20160131, end: 20161223

REACTIONS (3)
  - Drug ineffective [None]
  - Breast mass [None]
  - Product quality issue [None]

NARRATIVE: CASE EVENT DATE: 20161107
